FAERS Safety Report 16072585 (Version 1)
Quarter: 2019Q1

REPORT INFORMATION
  Report Type: Spontaneous
  Country: US (occurrence: US)
  Receive Date: 20190212
  Receipt Date: 20190212
  Transmission Date: 20190418
  Serious: Yes (Disabling)
  Sender: FDA-Public Use
  Company Number: None

PATIENT
  Age: 56 Year
  Sex: Female
  Weight: 74.39 kg

DRUGS (3)
  1. KENALOG [Suspect]
     Active Substance: TRIAMCINOLONE ACETONIDE
     Indication: ECZEMA
     Dosage: ?          QUANTITY:1 1/2 CC;OTHER FREQUENCY:1 INJECTION/3MOS;?
  2. CHILDREN^S LIQUID BENADRYL [Concomitant]
  3. RANITIDINE. [Concomitant]
     Active Substance: RANITIDINE

REACTIONS (18)
  - Throat irritation [None]
  - Pharyngitis [None]
  - Back pain [None]
  - Head discomfort [None]
  - Anxiety [None]
  - Dysphagia [None]
  - Fear of death [None]
  - Throat tightness [None]
  - Hypersensitivity [None]
  - Hypoaesthesia [None]
  - Impaired quality of life [None]
  - Muscle mass [None]
  - Adverse drug reaction [None]
  - Dyspepsia [None]
  - Aphonia [None]
  - Ear congestion [None]
  - Rash [None]
  - Vision blurred [None]

NARRATIVE: CASE EVENT DATE: 20180815
